FAERS Safety Report 9311050 (Version 1)
Quarter: 2013Q2

REPORT INFORMATION
  Report Type: Spontaneous
  Country: US (occurrence: None)
  Receive Date: 20130523
  Receipt Date: 20130523
  Transmission Date: 20140414
  Serious: Yes (Other)
  Sender: FDA-Public Use
  Company Number: None

PATIENT
  Age: 57 Year
  Sex: Male
  Weight: 104.33 kg

DRUGS (2)
  1. CYMBALTA 60MG ELI LILLY [Suspect]
     Indication: ANXIETY
     Dosage: 1 CAPSULE
     Route: 048
     Dates: start: 20070701, end: 20130514
  2. CYMBALTA 60MG ELI LILLY [Suspect]
     Indication: STRESS
     Dosage: 1 CAPSULE
     Route: 048
     Dates: start: 20070701, end: 20130514

REACTIONS (16)
  - Libido disorder [None]
  - Wrong technique in drug usage process [None]
  - Drug withdrawal syndrome [None]
  - Inappropriate schedule of drug administration [None]
  - Tinnitus [None]
  - Dizziness [None]
  - Balance disorder [None]
  - Decreased appetite [None]
  - Diarrhoea [None]
  - Fatigue [None]
  - Myalgia [None]
  - Musculoskeletal stiffness [None]
  - Muscle twitching [None]
  - Disturbance in attention [None]
  - Expressive language disorder [None]
  - Suicidal ideation [None]
